FAERS Safety Report 14430834 (Version 1)
Quarter: 2018Q1

REPORT INFORMATION
  Report Type: Spontaneous
  Country: US (occurrence: US)
  Receive Date: 20180124
  Receipt Date: 20180124
  Transmission Date: 20180509
  Serious: No
  Sender: FDA-Public Use
  Company Number: None

PATIENT
  Age: 2 Year
  Sex: Male
  Weight: 12.7 kg

DRUGS (1)
  1. MIRALAX [Suspect]
     Active Substance: POLYETHYLENE GLYCOL 3350
     Indication: CONSTIPATION
     Dosage: 1/2 CAPFUL ONCE DAILY AS INDICATED
     Dates: start: 20171208, end: 20171216

REACTIONS (2)
  - Aggression [None]
  - Nervousness [None]

NARRATIVE: CASE EVENT DATE: 20171215
